FAERS Safety Report 20608145 (Version 6)
Quarter: 2022Q4

REPORT INFORMATION
  Report Type: Spontaneous
  Country: US (occurrence: US)
  Receive Date: 20220317
  Receipt Date: 20221021
  Transmission Date: 20230113
  Serious: Yes (Hospitalization, Other)
  Sender: FDA-Public Use
  Company Number: US-BAYER-2022A035465

PATIENT
  Age: 35 Year
  Sex: Male

DRUGS (7)
  1. KOGENATE FS [Suspect]
     Active Substance: ANTIHEMOPHILIC FACTOR, HUMAN RECOMBINANT
     Dosage: 2500 U, TID
  2. KOGENATE FS [Suspect]
     Active Substance: ANTIHEMOPHILIC FACTOR, HUMAN RECOMBINANT
     Dosage: 2500 U, PRN
  3. KOGENATE FS [Suspect]
     Active Substance: ANTIHEMOPHILIC FACTOR, HUMAN RECOMBINANT
     Dosage: 4 DF, FOR THE RIGHT ANKLE BLEED TREATMENT
  4. KOGENATE FS [Suspect]
     Active Substance: ANTIHEMOPHILIC FACTOR, HUMAN RECOMBINANT
     Dosage: UNK, QD
     Dates: start: 20220521
  5. KOGENATE FS [Suspect]
     Active Substance: ANTIHEMOPHILIC FACTOR, HUMAN RECOMBINANT
     Dosage: 6 DF TO TREAT LEFT ANKLE BLEED
     Dates: start: 202208
  6. KOGENATE FS [Suspect]
     Active Substance: ANTIHEMOPHILIC FACTOR, HUMAN RECOMBINANT
     Dosage: 6 DF TO TREAT LEFT BICEP BLEED
     Dates: start: 202210
  7. KOGENATE FS [Suspect]
     Active Substance: ANTIHEMOPHILIC FACTOR, HUMAN RECOMBINANT
     Dosage: 6 DF TO TREAT LEFT BICEP BLEED
     Dates: start: 202210

REACTIONS (6)
  - Haemarthrosis [None]
  - Haemarthrosis [Recovered/Resolved]
  - Knee arthroplasty [Recovering/Resolving]
  - Blood pressure inadequately controlled [Not Recovered/Not Resolved]
  - Haemarthrosis [Recovering/Resolving]
  - Muscle haemorrhage [None]

NARRATIVE: CASE EVENT DATE: 20220307
